FAERS Safety Report 22914803 (Version 5)
Quarter: 2023Q4

REPORT INFORMATION
  Report Type: Spontaneous
  Country: BR (occurrence: BR)
  Receive Date: 20230907
  Receipt Date: 20231031
  Transmission Date: 20240110
  Serious: Yes (Other)
  Sender: FDA-Public Use
  Company Number: BR-SANDOZ-SDZ2023BR023812

PATIENT
  Age: 55 Year
  Sex: Female

DRUGS (3)
  1. ANASTROZOLE [Suspect]
     Active Substance: ANASTROZOLE
     Indication: Breast cancer
     Dosage: UNK, QD
     Route: 065
  2. KISQALI [Suspect]
     Active Substance: RIBOCICLIB
     Indication: Breast cancer
     Dosage: 3 DF, PILLS
     Route: 065
     Dates: start: 20230818
  3. KISQALI [Suspect]
     Active Substance: RIBOCICLIB
     Dosage: 3 DF
     Route: 065

REACTIONS (17)
  - Decreased immune responsiveness [Recovered/Resolved]
  - Bone disorder [Unknown]
  - Decreased immune responsiveness [Unknown]
  - Throat irritation [Recovered/Resolved]
  - Rhinorrhoea [Recovered/Resolved]
  - Influenza [Unknown]
  - Hypersensitivity [Recovered/Resolved]
  - Dysuria [Unknown]
  - Sinusitis [Unknown]
  - Myopia [Unknown]
  - Nasopharyngitis [Recovering/Resolving]
  - Liver disorder [Unknown]
  - Urinary tract infection [Recovering/Resolving]
  - Abdominal pain [Unknown]
  - Productive cough [Unknown]
  - Bone disorder [Unknown]
  - Vomiting [Recovered/Resolved]

NARRATIVE: CASE EVENT DATE: 20230801
